FAERS Safety Report 10659611 (Version 1)
Quarter: 2014Q4

REPORT INFORMATION
  Report Type: Spontaneous
  Country: US (occurrence: None)
  Receive Date: 20141205
  Receipt Date: 20141205
  Transmission Date: 20150529
  Serious: Yes (Other)
  Sender: FDA-Public Use
  Company Number: 163-POMAL-14085393

PATIENT
  Age: 71 Year
  Sex: Female
  Weight: 52.2 kg

DRUGS (9)
  1. CENTRUM SILVER (CHEWABLE TABLET) [Concomitant]
  2. IMODIUM A-D (LOPERAMIDE HYDROCHLORIDE) [Concomitant]
  3. MAGNESIUM (MAGNESIUM) [Concomitant]
     Active Substance: MAGNESIUM
  4. ASTEPRO (AZELASTINE HYDROCHLORIDE)(SPRAY (NOT INHALATION)) [Concomitant]
  5. FLORASTOR (SACCHAROMYCES BOULARDII) (CAPSULES) [Concomitant]
  6. VITAMIN B12 [Concomitant]
     Active Substance: CYANOCOBALAMIN
  7. POMALYST [Suspect]
     Active Substance: POMALIDOMIDE
     Indication: PLASMA CELL MYELOMA
     Dosage: 21 IN 21 D
     Route: 048
     Dates: start: 201401
  8. GABAPENTIN (GABAPENTIN) [Concomitant]
     Active Substance: GABAPENTIN
  9. ASPIRIN (ACETYLSALICYLIC ACID) [Concomitant]
     Active Substance: ASPIRIN

REACTIONS (1)
  - Muscle tone disorder [None]
